FAERS Safety Report 15577003 (Version 2)
Quarter: 2018Q4

REPORT INFORMATION
  Report Type: Spontaneous
  Country: GR (occurrence: GR)
  Receive Date: 20181101
  Receipt Date: 20181115
  Transmission Date: 20190205
  Serious: Yes (Hospitalization)
  Sender: FDA-Public Use
  Company Number: GR-ELI_LILLY_AND_COMPANY-GR201810015033

PATIENT
  Age: 45 Year
  Sex: Male

DRUGS (2)
  1. RISPERDAL [Concomitant]
     Active Substance: RISPERIDONE
     Indication: PRODUCT USED FOR UNKNOWN INDICATION
     Dosage: 6 MG, DAILY
     Route: 065
  2. ZYPADHERA [Suspect]
     Active Substance: OLANZAPINE PAMOATE
     Indication: SCHIZOPHRENIA
     Dosage: 300 MG, MONTHLY (1/M)
     Route: 030
     Dates: start: 201806

REACTIONS (6)
  - Confusional state [Unknown]
  - Disorientation [Unknown]
  - Gait disturbance [Unknown]
  - Post-injection delirium sedation syndrome [Unknown]
  - Prosopagnosia [Unknown]
  - Dizziness [Unknown]

NARRATIVE: CASE EVENT DATE: 201810
